FAERS Safety Report 24248005 (Version 1)
Quarter: 2024Q3

REPORT INFORMATION
  Report Type: Spontaneous
  Country: TR (occurrence: TR)
  Receive Date: 20240826
  Receipt Date: 20240826
  Transmission Date: 20241017
  Serious: Yes (Hospitalization)
  Sender: NOVARTIS
  Company Number: TR-002147023-NVSC2024TR169888

PATIENT
  Sex: Female

DRUGS (3)
  1. OCTREOTIDE [Suspect]
     Active Substance: OCTREOTIDE\OCTREOTIDE ACETATE
     Indication: Congenital chylothorax
     Dosage: 1 ?G/KG/H, INITIAL DOSE
     Route: 065
  2. OCTREOTIDE [Suspect]
     Active Substance: OCTREOTIDE\OCTREOTIDE ACETATE
     Indication: Bronchial lesion excision
     Dosage: 10 ?G/KG/H, MAXIMUM DOSE
     Route: 065
  3. OCTREOTIDE [Suspect]
     Active Substance: OCTREOTIDE\OCTREOTIDE ACETATE
     Dosage: 8 ?G/KG/H, REDUCED DOSE
     Route: 065

REACTIONS (3)
  - Ventricular extrasystoles [Recovered/Resolved]
  - Product use issue [Unknown]
  - Product use in unapproved indication [Unknown]
